FAERS Safety Report 19250152 (Version 1)
Quarter: 2021Q2

REPORT INFORMATION
  Report Type: Spontaneous
  Country: US (occurrence: US)
  Receive Date: 20210512
  Receipt Date: 20210512
  Transmission Date: 20210717
  Serious: Yes (Other)
  Sender: FDA-Public Use
  Company Number: US-BIOMARINAP-US-2021-136370

PATIENT
  Age: 47 Year
  Sex: Female

DRUGS (1)
  1. PALYNZIQ [Suspect]
     Active Substance: PEGVALIASE-PQPZ
     Indication: HYPERPHENYLALANINAEMIA
     Dosage: 2.5 MILLIGRAM
     Route: 058

REACTIONS (6)
  - Pharyngeal hypoaesthesia [Unknown]
  - Urticaria [Unknown]
  - Ocular hyperaemia [Unknown]
  - Eye swelling [Unknown]
  - Throat tightness [Unknown]
  - Pharyngeal paraesthesia [Unknown]

NARRATIVE: CASE EVENT DATE: 20210501
